FAERS Safety Report 17251949 (Version 1)
Quarter: 2020Q1

REPORT INFORMATION
  Report Type: Spontaneous
  Country: US (occurrence: US)
  Receive Date: 20200109
  Receipt Date: 20200109
  Transmission Date: 20200409
  Serious: No
  Sender: FDA-Public Use
  Company Number: US-KARYOPHARM-2019KPT000873

PATIENT

DRUGS (4)
  1. XPOVIO [Suspect]
     Active Substance: SELINEXOR
     Dosage: 80 MG, WEEKLY
     Route: 048
     Dates: start: 20191206
  2. XPOVIO [Suspect]
     Active Substance: SELINEXOR
     Indication: PLASMA CELL MYELOMA
     Dosage: 100 MG, WEEKLY
     Route: 048
     Dates: start: 20191108
  3. ZOFRAN [Concomitant]
     Active Substance: ONDANSETRON HYDROCHLORIDE
     Indication: NAUSEA
  4. EMEND [Concomitant]
     Active Substance: APREPITANT
     Indication: NAUSEA

REACTIONS (8)
  - Hepatic enzyme increased [Unknown]
  - Hyponatraemia [Unknown]
  - Decreased appetite [Unknown]
  - Taste disorder [Unknown]
  - Nausea [Unknown]
  - Ejection fraction decreased [Unknown]
  - Anaemia [Unknown]
  - Fatigue [Unknown]
